FAERS Safety Report 9285984 (Version 1)
Quarter: 2013Q2

REPORT INFORMATION
  Report Type: Spontaneous
  Country: US (occurrence: None)
  Receive Date: 20130510
  Receipt Date: 20130510
  Transmission Date: 20140414
  Serious: Yes (Disabling)
  Sender: FDA-Public Use
  Company Number: None

PATIENT
  Age: 79 Year
  Sex: Male
  Weight: 72.58 kg

DRUGS (1)
  1. WELCHOL 3.75 G PACKET, DAIICHI [Suspect]
     Dosage: 1 PACKET 1 A DAY
     Dates: start: 20130207, end: 20130404

REACTIONS (3)
  - Constipation [None]
  - Arthralgia [None]
  - Exercise tolerance decreased [None]
